FAERS Safety Report 17673603 (Version 1)
Quarter: 2020Q2

REPORT INFORMATION
  Report Type: Spontaneous
  Country: US (occurrence: US)
  Receive Date: 20200416
  Receipt Date: 20200416
  Transmission Date: 20200714
  Serious: No
  Sender: FDA-Public Use
  Company Number: US-AMGEN INC.-USASP2019218933

PATIENT

DRUGS (1)
  1. AIMOVIG [Suspect]
     Active Substance: ERENUMAB-AOOE
     Indication: PRODUCT USED FOR UNKNOWN INDICATION
     Dosage: 2, 70 MILLIGRAM
     Route: 065

REACTIONS (6)
  - Tinnitus [Unknown]
  - Hypoacusis [Unknown]
  - Dizziness [Unknown]
  - Visual impairment [Unknown]
  - Injection site haemorrhage [Unknown]
  - Nausea [Unknown]
